FAERS Safety Report 22206795 (Version 1)
Quarter: 2023Q2

REPORT INFORMATION
  Report Type: Spontaneous
  Country: US (occurrence: US)
  Receive Date: 20230413
  Receipt Date: 20230413
  Transmission Date: 20230721
  Serious: Yes (Hospitalization)
  Sender: FDA-Public Use
  Company Number: US-TAKEDA-2023TUS037341

PATIENT
  Sex: Female
  Weight: 78 kg

DRUGS (7)
  1. HYQVIA [Suspect]
     Active Substance: HUMAN IMMUNOGLOBULIN G\HYALURONIDASE RECOMBINANT HUMAN
     Indication: Product used for unknown indication
     Dosage: UNK
     Route: 065
  2. TYLENOL [Concomitant]
     Active Substance: ACETAMINOPHEN
  3. ELIQUIS [Concomitant]
     Active Substance: APIXABAN
  4. DIGOXIN [Concomitant]
     Active Substance: DIGOXIN
  5. ATORVASTATIN [Concomitant]
     Active Substance: ATORVASTATIN
  6. TUMS [Concomitant]
     Active Substance: CALCIUM CARBONATE
  7. LIPITOR [Concomitant]
     Active Substance: ATORVASTATIN CALCIUM

REACTIONS (2)
  - Hospitalisation [Unknown]
  - Insurance issue [Unknown]
